FAERS Safety Report 7459950-4 (Version None)
Quarter: 2011Q2

REPORT INFORMATION
  Report Type: 
  Country: None (occurrence: None)
  Receive Date: 20110505
  Receipt Date: 20110418
  Transmission Date: 20111010
  Serious: Yes (Other)
  Sender: FDA-Public Use
  Company Number: GB-PFIZER INC-2011095666

PATIENT
  Sex: Male

DRUGS (1)
  1. NICOTINE [Suspect]
     Dosage: UNK
     Route: 045
     Dates: start: 20110404, end: 20110404

REACTIONS (3)
  - PRODUCT TAMPERING [None]
  - PRODUCT QUALITY ISSUE [None]
  - FEELING ABNORMAL [None]
